FAERS Safety Report 8252841-0 (Version None)
Quarter: 2012Q2

REPORT INFORMATION
  Report Type: 
  Country: None (occurrence: None)
  Receive Date: 20120402
  Receipt Date: 20120206
  Transmission Date: 20120825
  Serious: No
  Sender: FDA-Public Use
  Company Number: US-ABBOTT-12P-163-0902208-00

PATIENT
  Sex: Female
  Weight: 68.1 kg

DRUGS (3)
  1. PROVERA [Concomitant]
     Indication: HORMONE REPLACEMENT THERAPY
  2. ANDROGEL [Suspect]
     Indication: PRODUCT USED FOR UNKNOWN INDICATION
  3. ESTROPROPIATE [Concomitant]
     Indication: HORMONE REPLACEMENT THERAPY

REACTIONS (5)
  - THERAPEUTIC RESPONSE UNEXPECTED [None]
  - LIBIDO INCREASED [None]
  - BLOOD TESTOSTERONE INCREASED [None]
  - ACCIDENTAL EXPOSURE [None]
  - HAIR GROWTH ABNORMAL [None]
